FAERS Safety Report 4690243-4 (Version None)
Quarter: 2005Q2

REPORT INFORMATION
  Report Type: 
  Country: None (occurrence: None)
  Receive Date: 20050615
  Receipt Date: 20030603
  Transmission Date: 20051028
  Serious: Yes (Hospitalization, Disabling)
  Sender: FDA-Public Use
  Company Number: US-MERCK-0306USA00259

PATIENT
  Age: 57 Year
  Sex: Male
  Weight: 86 kg

DRUGS (6)
  1. VIOXX [Suspect]
     Indication: ARTHRITIS
     Route: 048
     Dates: start: 19990719, end: 19991018
  2. VIOXX [Suspect]
     Route: 048
     Dates: start: 19991019, end: 19991001
  3. VIOXX [Suspect]
     Route: 048
     Dates: start: 19991001, end: 20011119
  4. DURAGESIC-100 [Concomitant]
     Route: 065
     Dates: start: 20000810
  5. PREVACID [Concomitant]
     Route: 065
     Dates: start: 20000201
  6. EFFEXOR [Concomitant]
     Route: 065
     Dates: start: 20000801, end: 20031019

REACTIONS (26)
  - ANXIETY [None]
  - ARTERIAL OCCLUSIVE DISEASE [None]
  - ASEPTIC NECROSIS BONE [None]
  - BURSITIS [None]
  - CAROTID ARTERY STENOSIS [None]
  - CEREBRAL ARTERY OCCLUSION [None]
  - CEREBROVASCULAR ACCIDENT [None]
  - COGNITIVE DISORDER [None]
  - COLONIC POLYP [None]
  - DEPRESSION [None]
  - DIVERTICULUM [None]
  - DRUG INEFFECTIVE [None]
  - DYSPEPSIA [None]
  - FEELING ABNORMAL [None]
  - GAIT DISTURBANCE [None]
  - HAEMATOCHEZIA [None]
  - HIATUS HERNIA [None]
  - ISCHAEMIC STROKE [None]
  - JOINT SWELLING [None]
  - NEPHROLITHIASIS [None]
  - OESOPHAGEAL DISORDER [None]
  - PAIN [None]
  - SEBORRHOEIC KERATOSIS [None]
  - SKIN LESION [None]
  - SPINAL DISORDER [None]
  - SPINAL OSTEOARTHRITIS [None]
